FAERS Safety Report 9594759 (Version 1)
Quarter: 2013Q3

REPORT INFORMATION
  Report Type: Spontaneous
  Country: US (occurrence: None)
  Receive Date: 20130927
  Receipt Date: 20130927
  Transmission Date: 20140515
  Serious: Yes (Death)
  Sender: FDA-Public Use
  Company Number: CABO-13003125

PATIENT
  Age: 58 Year
  Sex: Male

DRUGS (9)
  1. COMETRIQ [Suspect]
     Indication: PROSTATE CANCER
     Route: 048
     Dates: start: 20130525, end: 20130720
  2. COMETRIQ [Suspect]
     Indication: METASTASES TO BONE
     Route: 048
     Dates: start: 20130525, end: 20130720
  3. PROMACTA (ELTROMBOPAG OLAMINE) [Concomitant]
  4. AMBIEN (ZOLPIDEM TARTRATE) [Concomitant]
  5. LUPRON (LEUPROPRELIN ACETATE) [Concomitant]
  6. CALCIUM (CALCIUM) [Concomitant]
  7. XGEVA (DENOSUMAB) [Concomitant]
  8. TORADOL (KETOROLAC TROMETHAMINE) [Suspect]
  9. MULTIVITAMIN (VITAMINS NOS) [Concomitant]

REACTIONS (1)
  - Malignant neoplasm progression [None]
